FAERS Safety Report 6564920-4 (Version None)
Quarter: 2010Q1

REPORT INFORMATION
  Report Type: 
  Country: None (occurrence: None)
  Receive Date: 20100201
  Receipt Date: 20100120
  Transmission Date: 20100710
  Serious: No
  Sender: FDA-Public Use
  Company Number: US-B.I. PHARMACEUTICALS,INC./RIDGEFIELD-2010-BP-00725BP

PATIENT
  Sex: Female

DRUGS (6)
  1. ZANTAC [Suspect]
     Indication: REFLUX LARYNGITIS
     Dosage: 300 MG
     Route: 048
     Dates: start: 20091216
  2. ZOLOFT [Concomitant]
  3. NEURONTIN [Concomitant]
  4. KLONOPIN [Concomitant]
  5. TRAZODONE [Concomitant]
  6. BENADRYL [Concomitant]
     Indication: SLEEP DISORDER THERAPY

REACTIONS (1)
  - INSOMNIA [None]
